FAERS Safety Report 4342864-6 (Version None)
Quarter: 2004Q2

REPORT INFORMATION
  Report Type: 
  Country: None (occurrence: None)
  Receive Date: 20040416
  Receipt Date: 20040408
  Transmission Date: 20050107
  Serious: Yes (Hospitalization)
  Sender: FDA-Public Use
  Company Number: US-JNJFOC-20040402594

PATIENT
  Age: 50 Year
  Sex: Female

DRUGS (6)
  1. DURAGESIC [Suspect]
     Indication: PAIN
     Dosage: SEE IMAGE
     Route: 062
     Dates: start: 20020101
  2. DURAGESIC [Suspect]
     Indication: PAIN
     Dosage: SEE IMAGE
     Route: 062
     Dates: start: 20030401
  3. FIORICET [Concomitant]
  4. BENTYL [Concomitant]
  5. PREVACID [Concomitant]
  6. HORMONES (ALL OTHER THERAPEUTIC PRODUCTS) [Concomitant]

REACTIONS (4)
  - ANAEMIA [None]
  - PERICARDITIS [None]
  - PLEURISY [None]
  - THROMBOSIS [None]
